FAERS Safety Report 23031792 (Version 1)
Quarter: 2023Q4

REPORT INFORMATION
  Report Type: Spontaneous
  Country: CN (occurrence: CN)
  Receive Date: 20231005
  Receipt Date: 20231005
  Transmission Date: 20240109
  Serious: Yes (Other)
  Sender: FDA-Public Use
  Company Number: CN-JNJFOC-20230967349

PATIENT
  Age: 14 Year
  Sex: Male
  Weight: 60 kg

DRUGS (2)
  1. REMICADE [Suspect]
     Active Substance: INFLIXIMAB
     Indication: Crohn^s disease
     Dosage: 0.4G AT 4 PUMP POINTS, 0.1G + 100ML NORMAL SALINE(NS); 10 ML/H
     Route: 041
     Dates: start: 20230921, end: 20230921
  2. SODIUM CHLORIDE [Concomitant]
     Active Substance: SODIUM CHLORIDE

REACTIONS (5)
  - Oxygen saturation decreased [Recovered/Resolved]
  - Dyspnoea [Recovered/Resolved]
  - Flushing [Recovered/Resolved]
  - Infusion related reaction [Recovered/Resolved]
  - Blood pressure increased [Recovered/Resolved]

NARRATIVE: CASE EVENT DATE: 20230921
